FAERS Safety Report 17140456 (Version 1)
Quarter: 2019Q4

REPORT INFORMATION
  Report Type: Spontaneous
  Country: IT (occurrence: IT)
  Receive Date: 20191211
  Receipt Date: 20191211
  Transmission Date: 20200122
  Serious: Yes (Death, Hospitalization, Other)
  Sender: FDA-Public Use
  Company Number: IT-ASTELLAS-2019US048743

PATIENT
  Age: 54 Year
  Sex: Female

DRUGS (3)
  1. TACROLIMUS. [Suspect]
     Active Substance: TACROLIMUS
     Indication: RENAL TRANSPLANT
     Route: 065
     Dates: start: 2018, end: 2018
  2. MYCOPHENOLATE SODIUM [Suspect]
     Active Substance: MYCOPHENOLATE SODIUM
     Indication: RENAL TRANSPLANT
     Route: 065
     Dates: start: 2018, end: 2018
  3. BASILIXIMAB [Concomitant]
     Active Substance: BASILIXIMAB
     Indication: RENAL TRANSPLANT
     Dosage: 20 MG, AT THE TIME OF SURGERY, AND 20 MG IN THE 4TH DAY AFTER TRANSPLANT
     Route: 065
     Dates: start: 2018

REACTIONS (8)
  - Neutropenia [Unknown]
  - Bacterial sepsis [Unknown]
  - Thrombocytopenia [Unknown]
  - Geotrichum infection [Fatal]
  - Immunosuppressant drug level increased [Unknown]
  - Enterococcal infection [Unknown]
  - Leukopenia [Recovered/Resolved]
  - Pseudomonas infection [Unknown]

NARRATIVE: CASE EVENT DATE: 2018
